FAERS Safety Report 26044439 (Version 1)
Quarter: 2025Q4

REPORT INFORMATION
  Report Type: Spontaneous
  Country: US (occurrence: US)
  Receive Date: 20251114
  Receipt Date: 20251114
  Transmission Date: 20260117
  Serious: No
  Sender: ELI LILLY AND COMPANY
  Company Number: US-ELI_LILLY_AND_COMPANY-US202511011090

PATIENT
  Age: 60 Year
  Sex: Female

DRUGS (2)
  1. ZEPBOUND [Suspect]
     Active Substance: TIRZEPATIDE
     Indication: Weight control
     Dosage: 2.5 MG, WEEKLY (1/W)
     Route: 065
     Dates: start: 20250820
  2. ZEPBOUND [Suspect]
     Active Substance: TIRZEPATIDE
     Dosage: 1.75 MG, WEEKLY (1/W)
     Route: 065

REACTIONS (2)
  - Off label use [Unknown]
  - Gastrointestinal disorder [Unknown]
